FAERS Safety Report 6958440-2 (Version None)
Quarter: 2010Q3

REPORT INFORMATION
  Report Type: 
  Country: None (occurrence: None)
  Receive Date: 20100831
  Receipt Date: 20100610
  Transmission Date: 20110219
  Serious: Yes (Hospitalization)
  Sender: FDA-Public Use
  Company Number: DE-ROCHE-710022

PATIENT
  Sex: Female
  Weight: 81 kg

DRUGS (5)
  1. MYCOPHENOLATE MOFETIL [Suspect]
     Indication: IMMUNOSUPPRESSION
     Route: 048
     Dates: start: 20090404, end: 20090427
  2. PREDNISONE [Suspect]
     Indication: IMMUNOSUPPRESSION
     Route: 048
  3. TACROLIMUS [Concomitant]
     Indication: IMMUNOSUPPRESSION
     Route: 048
     Dates: start: 20090404
  4. URSO FALK [Concomitant]
     Route: 048
  5. KONAKION [Concomitant]
     Indication: VITAMIN K DEFICIENCY
     Route: 048

REACTIONS (1)
  - IMPAIRED HEALING [None]
